FAERS Safety Report 18348478 (Version 1)
Quarter: 2020Q4

REPORT INFORMATION
  Report Type: Spontaneous
  Country: US (occurrence: US)
  Receive Date: 20201005
  Receipt Date: 20201005
  Transmission Date: 20210114
  Serious: Yes (Life-Threatening, Hospitalization)
  Sender: FDA-Public Use
  Company Number: None

PATIENT
  Age: 34 Year
  Sex: Female
  Weight: 61.23 kg

DRUGS (3)
  1. NEXPLANON [Suspect]
     Active Substance: ETONOGESTREL
  2. BAYER [Concomitant]
     Active Substance: ASPIRIN
  3. TYLENOL [Concomitant]
     Active Substance: ACETAMINOPHEN

REACTIONS (5)
  - Hypoaesthesia [None]
  - Neck pain [None]
  - Dyspnoea [None]
  - Thrombosis [None]
  - Headache [None]

NARRATIVE: CASE EVENT DATE: 20201002
